FAERS Safety Report 7618015-9 (Version None)
Quarter: 2011Q3

REPORT INFORMATION
  Report Type: 
  Country: None (occurrence: None)
  Receive Date: 20110718
  Receipt Date: 20110711
  Transmission Date: 20111222
  Serious: Yes (Life-Threatening, Hospitalization, Other)
  Sender: FDA-Public Use
  Company Number: PHHY2011DE58388

PATIENT
  Sex: Male
  Weight: 95 kg

DRUGS (17)
  1. RASILEZ HCT [Suspect]
     Indication: RENIN INCREASED
  2. ACE INHIBITOR NOS [Concomitant]
  3. NSAID'S [Concomitant]
  4. THIENOPYRIDINES [Concomitant]
  5. RASILEZ HCT [Suspect]
     Indication: HYPERTENSION
     Dosage: 1 DF, QD
     Route: 048
     Dates: start: 20091001
  6. VASODILATORS USED IN CARDIAC DISEASES [Concomitant]
     Dosage: UNK
     Dates: start: 20091020, end: 20100510
  7. LANTUS [Concomitant]
     Indication: DIABETES MELLITUS
     Dosage: 24 IU, QD
     Route: 058
     Dates: start: 20091001
  8. STATINS [Concomitant]
     Dosage: UNK UKN, UNK
  9. DIOVAN [Suspect]
     Indication: HYPERTENSION
     Dosage: 320 MG, QD
     Route: 048
     Dates: start: 20091001
  10. EBRANTIL [Concomitant]
     Indication: HYPERTENSION
     Dosage: 120 MG, QD
     Route: 048
     Dates: start: 20091001, end: 20100707
  11. VALSARTAN [Suspect]
     Dosage: UNK
     Route: 048
     Dates: start: 20090727, end: 20100510
  12. ALISKIREN [Suspect]
     Indication: HYPERTENSION
     Dosage: UNK
     Route: 048
     Dates: start: 20090319, end: 20100510
  13. AMLODIPINE [Concomitant]
     Indication: HYPERTENSION
     Dosage: 10 MG, QD
     Route: 048
     Dates: start: 20091001
  14. ANTIADRENERGIC AGENTS, CENTRALLY ACTING [Concomitant]
     Dosage: UNK
     Dates: end: 20091020
  15. FINASTERIDE [Concomitant]
     Indication: BENIGN PROSTATIC HYPERPLASIA
     Dosage: 5 MG, QD
     Route: 048
     Dates: start: 20091001
  16. METOPROLOL TARTRATE [Concomitant]
     Indication: HEART RATE
     Dosage: 190 MG, QD
     Route: 048
     Dates: start: 20090501
  17. GLIMEPIRIDE [Concomitant]
     Indication: DIABETES MELLITUS
     Dosage: 1.5 MG, QD
     Route: 048
     Dates: start: 20091001

REACTIONS (7)
  - BLOOD CREATININE INCREASED [None]
  - ADRENAL NEOPLASM [None]
  - ACUTE MYOCARDIAL INFARCTION [None]
  - CARDIAC FAILURE [None]
  - HYPERTENSION [None]
  - GOUT [None]
  - BENIGN PROSTATIC HYPERPLASIA [None]
